FAERS Safety Report 22262534 (Version 1)
Quarter: 2023Q2

REPORT INFORMATION
  Report Type: Spontaneous
  Country: US (occurrence: None)
  Receive Date: 20230428
  Receipt Date: 20230428
  Transmission Date: 20230722
  Serious: Yes (Other)
  Sender: FDA-Public Use
  Company Number: US-Unichem Pharmaceuticals (USA) Inc-UCM202304-000397

PATIENT
  Age: 51 Year
  Sex: Male

DRUGS (1)
  1. AMIODARONE HYDROCHLORIDE [Suspect]
     Active Substance: AMIODARONE HYDROCHLORIDE
     Indication: Supraventricular tachycardia
     Dosage: UNKNOWN

REACTIONS (6)
  - Left ventricular dysfunction [Recovered/Resolved]
  - Sinus bradycardia [Unknown]
  - Ventricular pre-excitation [Recovered/Resolved]
  - Atrioventricular block first degree [Unknown]
  - Tachycardia [Recovered/Resolved]
  - Condition aggravated [Recovered/Resolved]
